FAERS Safety Report 9009386 (Version 2)
Quarter: 2013Q1

REPORT INFORMATION
  Report Type: Report from Study
  Country: DK (occurrence: DK)
  Receive Date: 20130111
  Receipt Date: 20130118
  Transmission Date: 20140127
  Serious: Yes (Death, Hospitalization, Other)
  Sender: FDA-Public Use
  Company Number: DK-GENZYME-CAMP-1002471

PATIENT
  Age: 61 Year
  Sex: Male

DRUGS (22)
  1. CAMPATH [Suspect]
     Indication: T-CELL LYMPHOMA
     Dosage: 30 MG, 14 DAYS, QD
     Route: 058
     Dates: start: 20121003, end: 20121003
  2. CAMPATH [Suspect]
     Dosage: 30 MG, ONCE
     Route: 058
     Dates: start: 20121017, end: 20121017
  3. CYCLOPHOSPHAMIDE [Suspect]
     Indication: T-CELL LYMPHOMA
     Dosage: 1575 MG, 14 DAYS, QD
     Route: 042
     Dates: start: 20121003, end: 20121003
  4. CYCLOPHOSPHAMIDE [Suspect]
     Dosage: 1300 MG, ONCE
     Route: 042
     Dates: start: 20121017, end: 20121017
  5. DOXORUBICINE [Suspect]
     Indication: T-CELL LYMPHOMA
     Dosage: 50 MG/KG, 14 DAYS,QD
     Route: 042
     Dates: start: 20121003, end: 20121003
  6. DOXORUBICINE [Suspect]
     Dosage: 86 MG, ONCE
     Route: 042
     Dates: start: 20121017, end: 20121017
  7. VINCRISTINE [Suspect]
     Indication: T-CELL LYMPHOMA
     Dosage: 2 MG, 14 DAYS, QD
     Route: 042
     Dates: start: 20121003, end: 20121003
  8. VINCRISTINE [Suspect]
     Dosage: 2 MG, ONCE
     Route: 042
     Dates: start: 20121017, end: 20121017
  9. PREDNISONE [Suspect]
     Indication: T-CELL LYMPHOMA
     Dosage: 100 MG, 14 DAYS, QD
     Route: 048
     Dates: start: 20121003, end: 20121003
  10. PREDNISONE [Suspect]
     Dosage: 100 MG, ONCE
     Route: 042
     Dates: start: 20121017, end: 20121017
  11. PEGFILGRASTIM [Suspect]
     Indication: T-CELL LYMPHOMA
     Dosage: 6 MG, QD
     Route: 058
     Dates: start: 20121006, end: 20121006
  12. PEGFILGRASTIM [Suspect]
     Dosage: 6 MG, ONCE
     Route: 042
     Dates: start: 20121017, end: 20121017
  13. PANTOPRAZOLE [Concomitant]
     Indication: GASTRITIS PROPHYLAXIS
     Dosage: 40 MG, QD
     Route: 048
     Dates: start: 20120920
  14. LOPERAMIDE HCL [Concomitant]
     Indication: DIARRHOEA
     Dosage: 2 MG, BID
     Route: 048
     Dates: start: 20120920
  15. ALLOPURINOL [Concomitant]
     Indication: PROPHYLAXIS
     Dosage: 300 MG, QD
     Route: 048
     Dates: start: 20120925
  16. FENTANYL [Concomitant]
     Indication: PAIN
     Dosage: 12 MCG/HR, EVERY  3 DAYS
     Route: 062
     Dates: start: 20120927
  17. ACICLOVIR [Concomitant]
     Indication: ANTIVIRAL PROPHYLAXIS
     Dosage: 400 MG, BID
     Route: 048
     Dates: start: 20121001
  18. SULFAMETHOXAZOLE [Concomitant]
     Indication: ANTIFUNGAL PROPHYLAXIS
     Dosage: 400 MG, QD
     Route: 048
     Dates: start: 20121002
  19. TRIMETHOPRIM [Concomitant]
     Indication: ANTIFUNGAL PROPHYLAXIS
     Dosage: 80 MG, QD
     Route: 048
     Dates: start: 20121002
  20. ITRACONAZOLE [Concomitant]
     Indication: PROPHYLAXIS
     Dosage: 200 MG, BID
     Route: 048
     Dates: start: 20121004
  21. MORPHINE [Concomitant]
     Indication: DIARRHOEA
     Dosage: 10 GTT DROPS, BID
     Dates: start: 20121006
  22. FILGRASTIM [Concomitant]
     Indication: NEUTROPENIA
     Dosage: UNK
     Route: 065
     Dates: start: 20121024

REACTIONS (7)
  - T-cell lymphoma [Fatal]
  - White blood cell count decreased [Unknown]
  - Haemoglobin decreased [Unknown]
  - Sepsis [Unknown]
  - Incisional hernia [Fatal]
  - Abdominal wound dehiscence [Recovered/Resolved]
  - Fascial rupture [Recovered/Resolved]
